FAERS Safety Report 8164236-9 (Version None)
Quarter: 2012Q1

REPORT INFORMATION
  Report Type: 
  Country: None (occurrence: None)
  Receive Date: 20120224
  Receipt Date: 20111122
  Transmission Date: 20120608
  Serious: No
  Sender: FDA-Public Use
  Company Number: US-ASTRAZENECA-2011SE15486

PATIENT
  Age: 86 Year
  Sex: Female

DRUGS (9)
  1. TESSALON [Concomitant]
  2. ANOTHER INHALER [Concomitant]
     Indication: ASTHMA
  3. VIMOVO [Suspect]
     Indication: PAIN
     Dosage: 500/20 MG DAILY
     Route: 048
     Dates: start: 20110308
  4. AMITIZA [Concomitant]
     Indication: CONSTIPATION
  5. SIMVASTATIN [Concomitant]
     Indication: BLOOD CHOLESTEROL ABNORMAL
  6. TRIAMTERENE [Concomitant]
     Indication: OEDEMA
  7. DARVOCET [Concomitant]
     Indication: PAIN
  8. SYMBICORT [Suspect]
     Indication: CHRONIC OBSTRUCTIVE PULMONARY DISEASE
     Dosage: UNKNOWN FREQUENCY
     Route: 055
  9. ATENOLOL [Concomitant]
     Indication: HYPERTENSION

REACTIONS (4)
  - FATIGUE [None]
  - PNEUMONIA [None]
  - DYSPNOEA [None]
  - CONSTIPATION [None]
